FAERS Safety Report 17094261 (Version 1)
Quarter: 2019Q4

REPORT INFORMATION
  Report Type: Spontaneous
  Country: JP (occurrence: JP)
  Receive Date: 20191129
  Receipt Date: 20191129
  Transmission Date: 20200122
  Serious: Yes (Hospitalization, Other)
  Sender: FDA-Public Use
  Company Number: JP-BRISTOL-MYERS SQUIBB COMPANY-BMS-2019-114511

PATIENT
  Age: 64 Year
  Sex: Male
  Weight: 58 kg

DRUGS (11)
  1. DICLOFENAC NA [Concomitant]
     Active Substance: DICLOFENAC SODIUM
     Indication: CANCER PAIN
     Dosage: 75 MILLIGRAM
     Route: 048
     Dates: start: 20191016
  2. OXYCODONE [Concomitant]
     Active Substance: OXYCODONE
     Indication: CANCER PAIN
     Dosage: 20 MILLIGRAM
     Route: 048
     Dates: start: 20191016
  3. DOCETAXEL. [Suspect]
     Active Substance: DOCETAXEL
     Indication: NON-SMALL CELL LUNG CANCER RECURRENT
     Dosage: 60 MILLIGRAM/SQ. METER
     Route: 041
     Dates: start: 20190703, end: 20190731
  4. NEXIUM [Concomitant]
     Active Substance: ESOMEPRAZOLE MAGNESIUM
     Indication: GASTRIC ULCER
     Dosage: 20 MILLIGRAM
     Route: 048
     Dates: start: 20190205
  5. OPDIVO [Suspect]
     Active Substance: NIVOLUMAB
     Indication: NON-SMALL CELL LUNG CANCER RECURRENT
     Dosage: 240 MG
     Route: 041
     Dates: start: 20190703, end: 20190815
  6. SPIRIVA [Concomitant]
     Active Substance: TIOTROPIUM BROMIDE MONOHYDRATE
     Indication: CHRONIC OBSTRUCTIVE PULMONARY DISEASE
     Dosage: 5 MICROGRAM
     Route: 055
     Dates: start: 20190201
  7. CALONAL [Concomitant]
     Active Substance: ACETAMINOPHEN
     Indication: CANCER PAIN
     Dosage: 2000 MILLIGRAM
     Route: 048
     Dates: start: 20191001
  8. DOCETAXEL. [Suspect]
     Active Substance: DOCETAXEL
     Indication: PRODUCT USED FOR UNKNOWN INDICATION
     Dosage: 50 MILLIGRAM/SQ. METER
     Route: 041
  9. ALLOPURINOL. [Concomitant]
     Active Substance: ALLOPURINOL
     Indication: HYPERURICAEMIA
     Dosage: 100 MILLIGRAM
     Route: 048
     Dates: start: 20190205
  10. FELBINAC [Concomitant]
     Active Substance: FELBINAC
     Indication: CANCER PAIN
     Dosage: 70 MILLIGRAM
     Route: 062
     Dates: start: 20191011
  11. MOSAPRIDE CITRATE [Concomitant]
     Active Substance: MOSAPRIDE CITRATE
     Indication: GASTRIC ULCER
     Dosage: 15 MILLIGRAM
     Route: 048
     Dates: start: 20190314

REACTIONS (10)
  - Interstitial lung disease [Not Recovered/Not Resolved]
  - Renal cyst [Unknown]
  - Eczema [Unknown]
  - Osteosclerosis [Unknown]
  - Arteriosclerosis [Unknown]
  - Enterocolitis [Not Recovered/Not Resolved]
  - Hepatic steatosis [Unknown]
  - Febrile neutropenia [Unknown]
  - Pancreatic atrophy [Unknown]
  - Cervical spinal stenosis [Unknown]

NARRATIVE: CASE EVENT DATE: 201907
